FAERS Safety Report 16802281 (Version 1)
Quarter: 2019Q3

REPORT INFORMATION
  Report Type: Spontaneous
  Country: CN (occurrence: CN)
  Receive Date: 20190912
  Receipt Date: 20190912
  Transmission Date: 20191005
  Serious: Yes (Hospitalization, Other)
  Sender: FDA-Public Use
  Company Number: CN-SA-2019SA255021

PATIENT
  Age: 90 Year
  Sex: Male
  Weight: 45 kg

DRUGS (1)
  1. HARNAL [Suspect]
     Active Substance: TAMSULOSIN HYDROCHLORIDE
     Indication: BENIGN PROSTATIC HYPERPLASIA
     Dosage: 0.2 MG, HS, AT BED TIME
     Route: 048
     Dates: start: 20190329, end: 20190819

REACTIONS (2)
  - Altered state of consciousness [Recovering/Resolving]
  - Orthostatic hypotension [Recovering/Resolving]

NARRATIVE: CASE EVENT DATE: 20190819
